FAERS Safety Report 18444480 (Version 5)
Quarter: 2021Q1

REPORT INFORMATION
  Report Type: Report from Study
  Country: None (occurrence: US)
  Receive Date: 20201030
  Receipt Date: 20210310
  Transmission Date: 20210419
  Serious: Yes (Hospitalization, Other)
  Sender: FDA-Public Use
  Company Number: US-ABBVIE-20K-163-3627363-00

PATIENT
  Age: 65 Year
  Sex: Female
  Weight: 68.1 kg

DRUGS (8)
  1. HUMIRA [Suspect]
     Active Substance: ADALIMUMAB
     Indication: UVEITIS
     Route: 058
     Dates: start: 2018, end: 201905
  2. HUMIRA [Suspect]
     Active Substance: ADALIMUMAB
     Indication: UVEITIS
  3. STELARA [Concomitant]
     Active Substance: USTEKINUMAB
     Indication: PSORIASIS
  4. TRIAMCINOLONE [Concomitant]
     Active Substance: TRIAMCINOLONE
     Indication: PRURITUS
  5. STELARA [Concomitant]
     Active Substance: USTEKINUMAB
     Indication: UVEITIS
  6. TRIAMCINOLONE [Concomitant]
     Active Substance: TRIAMCINOLONE
     Indication: PSORIASIS
  7. HUMIRA [Suspect]
     Active Substance: ADALIMUMAB
     Route: 058
     Dates: start: 202007, end: 202008
  8. HUMIRA [Suspect]
     Active Substance: ADALIMUMAB
     Indication: PSORIASIS
     Route: 058
     Dates: start: 2020, end: 20200928

REACTIONS (4)
  - Periarthritis [Recovering/Resolving]
  - Pruritus [Unknown]
  - Rotator cuff syndrome [Unknown]
  - Drug ineffective [Unknown]

NARRATIVE: CASE EVENT DATE: 20201027
